FAERS Safety Report 4970448-5 (Version None)
Quarter: 2006Q2

REPORT INFORMATION
  Report Type: 
  Country: None (occurrence: None)
  Receive Date: 20060406
  Receipt Date: 20060325
  Transmission Date: 20061013
  Serious: Yes (Hospitalization)
  Sender: FDA-Public Use
  Company Number: 2005-01833

PATIENT
  Age: 52 Year
  Sex: Male
  Weight: 80 kg

DRUGS (1)
  1. VELCADE [Suspect]
     Indication: MULTIPLE MYELOMA
     Dosage: 2.00 MG, 2/WEEK, INTRAVENOUS
     Route: 042

REACTIONS (4)
  - FLUID RETENTION [None]
  - HYPERPHOSPHATAEMIA [None]
  - URINARY RETENTION [None]
  - WEIGHT INCREASED [None]
